FAERS Safety Report 6829595-5 (Version None)
Quarter: 2010Q3

REPORT INFORMATION
  Report Type: 
  Country: None (occurrence: None)
  Receive Date: 20100709
  Receipt Date: 20070417
  Transmission Date: 20110219
  Serious: No
  Sender: FDA-Public Use
  Company Number: US-PFIZER INC-2007012326

PATIENT
  Sex: Female
  Weight: 79.38 kg

DRUGS (3)
  1. CHANTIX [Suspect]
     Indication: SMOKING CESSATION THERAPY
     Dates: start: 20070202, end: 20070208
  2. BENICAR [Concomitant]
     Indication: HYPERTENSION
  3. LEXAPRO [Concomitant]

REACTIONS (5)
  - NAUSEA [None]
  - NIGHTMARE [None]
  - PAIN [None]
  - TREMOR [None]
  - VOMITING [None]
